FAERS Safety Report 4664337-3 (Version None)
Quarter: 2005Q2

REPORT INFORMATION
  Report Type: 
  Country: None (occurrence: None)
  Receive Date: 20050518
  Receipt Date: 20050513
  Transmission Date: 20051028
  Serious: Yes (Life-Threatening)
  Sender: FDA-Public Use
  Company Number: ZA-BRISTOL-MYERS SQUIBB COMPANY-12969085

PATIENT
  Age: 51 Year
  Sex: Male
  Weight: 91 kg

DRUGS (8)
  1. EFAVIRENZ [Suspect]
     Indication: HIV INFECTION
     Route: 048
     Dates: start: 20040329
  2. LAMIVUDINE [Suspect]
     Indication: HIV INFECTION
     Route: 048
     Dates: start: 20040329
  3. TENOFOVIR DISOPROXIL FUMARATE [Suspect]
     Indication: HIV INFECTION
     Route: 048
     Dates: start: 20040329
  4. ALLERGEX [Concomitant]
     Dates: start: 20050302, end: 20050323
  5. PREDNISONE [Concomitant]
     Dates: start: 20050302, end: 20050306
  6. MULTI-VITAMIN [Concomitant]
     Dates: start: 20030101
  7. STEROID CREAM [Concomitant]
     Route: 061
     Dates: start: 20040512
  8. AQUEOUS CREAM [Concomitant]
     Route: 061
     Dates: start: 20040512

REACTIONS (4)
  - BLOOD CREATINE PHOSPHOKINASE INCREASED [None]
  - HAEMATURIA [None]
  - RASH ERYTHEMATOUS [None]
  - RASH PAPULAR [None]
